FAERS Safety Report 4366319-8 (Version None)
Quarter: 2004Q2

REPORT INFORMATION
  Report Type: 
  Country: None (occurrence: None)
  Receive Date: 20040527
  Receipt Date: 20030108
  Transmission Date: 20050107
  Serious: No
  Sender: FDA-Public Use
  Company Number: US-GLAXOSMITHKLINE-A0391521A

PATIENT
  Age: 67 Year
  Sex: Female

DRUGS (5)
  1. VENTOLIN [Suspect]
     Indication: ASTHMA
     Dosage: 2PUFF FOUR TIMES PER DAY
     Route: 055
  2. PULMICORT [Concomitant]
     Dosage: 2PUFF TWICE PER DAY
     Route: 055
  3. NEXIUM [Concomitant]
  4. BENTYL [Concomitant]
  5. VIVELLE [Concomitant]
     Indication: HORMONE REPLACEMENT THERAPY

REACTIONS (4)
  - ASTHMA [None]
  - BRONCHIAL IRRITATION [None]
  - LARYNGEAL PAIN [None]
  - PHARMACEUTICAL PRODUCT COMPLAINT [None]
